FAERS Safety Report 10637241 (Version 1)
Quarter: 2014Q4

REPORT INFORMATION
  Report Type: Spontaneous
  Country: PR (occurrence: US)
  Receive Date: 20141208
  Receipt Date: 20141208
  Transmission Date: 20150529
  Serious: No
  Sender: FDA-Public Use
  Company Number: PR-PFIZER INC-2014334407

PATIENT
  Age: 45 Year
  Sex: Female
  Weight: 79 kg

DRUGS (3)
  1. CELEBREX [Suspect]
     Active Substance: CELECOXIB
     Indication: BONE PAIN
     Dosage: 200 MG, (MORNING AND AT NIGHT)
     Dates: start: 2012
  2. NALTREXONE [Suspect]
     Active Substance: NALTREXONE
     Indication: PAIN
     Dosage: 4.5 MG, (ALMOST EVERY DAY)
     Dates: start: 2014
  3. CELEBREX [Suspect]
     Active Substance: CELECOXIB
     Indication: PAIN
     Dosage: 200 MG, (ONCE A DAY)
     Dates: start: 2013

REACTIONS (1)
  - Dry skin [Not Recovered/Not Resolved]

NARRATIVE: CASE EVENT DATE: 201405
